FAERS Safety Report 4614926-7 (Version None)
Quarter: 2005Q1

REPORT INFORMATION
  Report Type: 
  Country: None (occurrence: None)
  Receive Date: 20050322
  Receipt Date: 20031121
  Transmission Date: 20050727
  Serious: Yes (Hospitalization, Disabling)
  Sender: FDA-Public Use
  Company Number: US-MERCK-0311USA02545

PATIENT
  Age: 50 Year
  Sex: Male
  Weight: 91 kg

DRUGS (3)
  1. VIOXX [Suspect]
     Indication: ARTHRITIS
     Route: 048
     Dates: start: 20010511, end: 20010830
  2. PROPRANOLOL HYDROCHLORIDE [Concomitant]
     Indication: HYPERTENSION
     Route: 065
     Dates: start: 19950101, end: 20010801
  3. DARVOCET-N 100 [Concomitant]
     Route: 065

REACTIONS (28)
  - ABDOMINAL PAIN UPPER [None]
  - ANGINA PECTORIS [None]
  - ANXIETY [None]
  - AORTIC STENOSIS [None]
  - APPETITE DISORDER [None]
  - CARDIAC DISORDER [None]
  - CARDIAC MURMUR [None]
  - CHEST DISCOMFORT [None]
  - CHEST PAIN [None]
  - CORONARY ARTERY DISEASE [None]
  - DEPRESSION [None]
  - DYSPEPSIA [None]
  - DYSPNOEA [None]
  - FATIGUE [None]
  - FEMORAL ARTERIAL STENOSIS [None]
  - GASTRIC DISORDER [None]
  - GASTROOESOPHAGEAL REFLUX DISEASE [None]
  - INSOMNIA [None]
  - INTERMITTENT CLAUDICATION [None]
  - LIVER FUNCTION TEST ABNORMAL [None]
  - MITRAL VALVE STENOSIS [None]
  - MYOCARDIAL INFARCTION [None]
  - PAIN [None]
  - PARALYSIS [None]
  - PERIPHERAL VASCULAR DISORDER [None]
  - RECTAL HAEMORRHAGE [None]
  - THROMBOSIS [None]
  - WEIGHT FLUCTUATION [None]
